FAERS Safety Report 14724288 (Version 2)
Quarter: 2018Q2

REPORT INFORMATION
  Report Type: Spontaneous
  Country: US (occurrence: US)
  Receive Date: 20180405
  Receipt Date: 20180426
  Transmission Date: 20180711
  Serious: Yes (Hospitalization, Other)
  Sender: FDA-Public Use
  Company Number: US-TEVA-2018-US-877342

PATIENT
  Age: 71 Year
  Sex: Female

DRUGS (7)
  1. PREDNISONE. [Suspect]
     Active Substance: PREDNISONE
     Dosage: CHOP REGIMEN
     Route: 065
  2. VANCOMYCIN [Suspect]
     Active Substance: VANCOMYCIN
     Indication: ANTIBIOTIC THERAPY
     Route: 065
  3. DOXORUBICIN [Suspect]
     Active Substance: DOXORUBICIN
     Dosage: CHOP REGIMEN
     Route: 065
  4. VINCRISTINE [Suspect]
     Active Substance: VINCRISTINE
     Dosage: CHOP REGIMEN
     Route: 065
  5. CYCLOPHOSPHAMIDE. [Suspect]
     Active Substance: CYCLOPHOSPHAMIDE
     Dosage: CHOP REGIMEN
     Route: 065
  6. CLINDAMYCIN. [Concomitant]
     Active Substance: CLINDAMYCIN
     Indication: ANTIBIOTIC THERAPY
     Route: 065
  7. BRENTUXIMAB [Suspect]
     Active Substance: BRENTUXIMAB VEDOTIN
     Route: 050

REACTIONS (3)
  - Thrombocytopenia [Unknown]
  - Erythema [Recovering/Resolving]
  - Tumour lysis syndrome [Recovering/Resolving]
